FAERS Safety Report 9068725 (Version 1)
Quarter: 2013Q1

REPORT INFORMATION
  Report Type: Spontaneous
  Country: FR (occurrence: FR)
  Receive Date: 20130215
  Receipt Date: 20130215
  Transmission Date: 20140127
  Serious: Yes (Hospitalization)
  Sender: FDA-Public Use
  Company Number: FR-009507513-1302FRA003320

PATIENT
  Age: 53 None
  Sex: Female

DRUGS (10)
  1. EMEND [Suspect]
     Indication: PROPHYLAXIS OF NAUSEA AND VOMITING
     Dosage: 125 MG, QD
     Route: 048
     Dates: start: 20130103, end: 20130103
  2. LEVACT [Suspect]
     Indication: B-CELL SMALL LYMPHOCYTIC LYMPHOMA
     Dosage: 127 MG, QD
     Route: 042
     Dates: start: 20130103, end: 20130103
  3. EUPANTOL [Suspect]
     Indication: PROPHYLAXIS AGAINST GASTROINTESTINAL ULCER
     Route: 042
  4. MABTHERA [Concomitant]
     Indication: B-CELL SMALL LYMPHOCYTIC LYMPHOMA
     Dosage: 679 MG, QD
     Dates: start: 20130102, end: 20130102
  5. ZOPHREN (ONDANSETRON) [Concomitant]
     Indication: PREMEDICATION
  6. PLITICAN [Concomitant]
     Indication: PREMEDICATION
  7. BACTRIM [Concomitant]
  8. ZELITREX [Concomitant]
  9. PROPRANOLOL HYDROCHLORIDE [Concomitant]
  10. TRAMADOL HYDROCHLORIDE [Concomitant]

REACTIONS (1)
  - Hepatocellular injury [Recovering/Resolving]
